FAERS Safety Report 17694019 (Version 2)
Quarter: 2020Q4

REPORT INFORMATION
  Report Type: Report from Study
  Country: CA (occurrence: CA)
  Receive Date: 20200422
  Receipt Date: 20201029
  Transmission Date: 20210113
  Serious: Yes (Other)
  Sender: FDA-Public Use
  Company Number: CA-TEVA-2019-CA-1051554

PATIENT
  Age: 32 Year
  Sex: Female
  Weight: 83 kg

DRUGS (5)
  1. STRATTERA [Concomitant]
     Active Substance: ATOMOXETINE HYDROCHLORIDE
     Dosage: STAND BY DURING BREAST FEEDING
  2. VITAMIN D [Concomitant]
     Active Substance: VITAMIN D NOS
  3. COPAXONE [Suspect]
     Active Substance: GLATIRAMER ACETATE
     Indication: RELAPSING-REMITTING MULTIPLE SCLEROSIS
  4. APRI [Concomitant]
     Active Substance: DESOGESTREL\ETHINYL ESTRADIOL
  5. COPAXONE [Suspect]
     Active Substance: GLATIRAMER ACETATE
     Indication: MULTIPLE SCLEROSIS
     Dates: start: 20170718

REACTIONS (11)
  - Hepatitis cholestatic [Unknown]
  - Wrong technique in product usage process [Unknown]
  - Maternal exposure during pregnancy [Unknown]
  - Injection site bruising [Unknown]
  - Injection site swelling [Unknown]
  - Live birth [Unknown]
  - Injection site erythema [Unknown]
  - Stress [Unknown]
  - Fatigue [Unknown]
  - Injection site pain [Unknown]
  - Drug-induced liver injury [Unknown]

NARRATIVE: CASE EVENT DATE: 20181205
